FAERS Safety Report 7902562-6 (Version None)
Quarter: 2011Q4

REPORT INFORMATION
  Report Type: 
  Country: None (occurrence: None)
  Receive Date: 20111108
  Receipt Date: 20111028
  Transmission Date: 20120403
  Serious: No
  Sender: FDA-Public Use
  Company Number: US-B.I. PHARMACEUTICALS,INC./RIDGEFIELD-2011-BP-25307BP

PATIENT
  Sex: Male

DRUGS (5)
  1. MEDICATION NOT FURTHER SPECIFIED [Concomitant]
     Indication: PROSTATIC DISORDER
  2. TOPROL-XL [Concomitant]
     Indication: HYPERTENSION
  3. VITAMIN B-12 [Concomitant]
     Indication: VITAMIN SUPPLEMENTATION
  4. PRADAXA [Suspect]
     Indication: ATRIAL FIBRILLATION
     Dosage: 300 MG
     Route: 048
     Dates: start: 20110301
  5. IRON SUPPLEMENTS [Concomitant]
     Indication: ANAEMIA

REACTIONS (2)
  - WEIGHT DECREASED [None]
  - ABDOMINAL DISCOMFORT [None]
